FAERS Safety Report 11836627 (Version 1)
Quarter: 2015Q4

REPORT INFORMATION
  Report Type: Other
  Country: US (occurrence: US)
  Receive Date: 20151215
  Receipt Date: 20151215
  Transmission Date: 20160305
  Serious: Yes (Other)
  Sender: FDA-Public Use
  Company Number: US-B. BRAUN MEDICAL INC.-1045492

PATIENT
  Age: 1 Month
  Sex: Male

DRUGS (1)
  1. METRONIDAZOLE. [Suspect]
     Active Substance: METRONIDAZOLE
     Indication: BACTERIAL VAGINOSIS

REACTIONS (5)
  - Hypothermia neonatal [Recovered/Resolved]
  - Failure to thrive [Recovered/Resolved]
  - Bradycardia neonatal [Recovered/Resolved]
  - Decreased activity [Recovered/Resolved]
  - Toxic encephalopathy [Recovered/Resolved]
